FAERS Safety Report 8480296 (Version 2)
Quarter: 2014Q1

REPORT INFORMATION
  Report Type: Report from Study
  Country: DZ (occurrence: DZ)
  Receive Date: 20120328
  Receipt Date: 20140207
  Transmission Date: 20141002
  Serious: Yes (Death, Hospitalization)
  Sender: FDA-Public Use
  Company Number: DZ-ROCHE-1052082

PATIENT
  Age: 43 Year
  Sex: Female

DRUGS (4)
  1. TRASTUZUMAB [Suspect]
     Indication: BREAST CANCER
     Route: 042
     Dates: end: 201201
  2. TRAMADOL [Concomitant]
     Indication: ARTHRALGIA
     Route: 048
     Dates: start: 20120108, end: 20120312
  3. SOLUPRED (PREDNISOLONE) [Concomitant]
     Route: 048
     Dates: start: 20120108, end: 20120303
  4. OMEPRAZOLE [Concomitant]
     Route: 048
     Dates: start: 20120108, end: 20120303

REACTIONS (4)
  - Pancreatic carcinoma [Fatal]
  - Ulcer [Unknown]
  - Abdominal pain upper [Unknown]
  - Vomiting [Unknown]
